FAERS Safety Report 16857587 (Version 2)
Quarter: 2020Q1

REPORT INFORMATION
  Report Type: Report from Study
  Country: CA (occurrence: CA)
  Receive Date: 20190926
  Receipt Date: 20200103
  Transmission Date: 20200409
  Serious: Yes (Hospitalization)
  Sender: FDA-Public Use
  Company Number: CA-INCYTE CORPORATION-2017IN010240

PATIENT

DRUGS (6)
  1. JAKAVI [Suspect]
     Active Substance: RUXOLITINIB
     Indication: POLYCYTHAEMIA VERA
     Dosage: 10 MG, BID
     Route: 048
  2. JAKAVI [Suspect]
     Active Substance: RUXOLITINIB
     Dosage: 20 MG, QD
     Route: 048
     Dates: start: 20171110
  3. JAKAVI [Suspect]
     Active Substance: RUXOLITINIB
     Dosage: 20 MG, BID
     Route: 048
     Dates: start: 20170815
  4. JAKAVI [Suspect]
     Active Substance: RUXOLITINIB
     Dosage: 10 MG, BID
     Route: 048
  5. JAKAVI [Suspect]
     Active Substance: RUXOLITINIB
     Dosage: 20 MG, UNK
     Route: 048
     Dates: start: 20170602
  6. JAKAVI [Suspect]
     Active Substance: RUXOLITINIB
     Dosage: 20 MG, BID
     Route: 048
     Dates: start: 20171114

REACTIONS (10)
  - Platelet count decreased [Unknown]
  - Immune system disorder [Unknown]
  - Dry mouth [Unknown]
  - Malaise [Unknown]
  - Hypersomnia [Unknown]
  - Splenomegaly [Recovering/Resolving]
  - Influenza [Unknown]
  - Acne [Recovering/Resolving]
  - Haemorrhage [Unknown]
  - Skin discolouration [Unknown]

NARRATIVE: CASE EVENT DATE: 20171113
